FAERS Safety Report 7013338-9 (Version None)
Quarter: 2010Q3

REPORT INFORMATION
  Report Type: 
  Country: None (occurrence: None)
  Receive Date: 20100924
  Receipt Date: 20100922
  Transmission Date: 20110219
  Serious: Yes (Death)
  Sender: FDA-Public Use
  Company Number: CH-ROCHE-728916

PATIENT
  Age: 85 Year
  Sex: Male
  Weight: 69.5 kg

DRUGS (2)
  1. METHOXY POLYETHYLENE GLYCOL-EPOETIN BETA [Suspect]
     Route: 065
     Dates: end: 20100802
  2. IRON [Concomitant]

REACTIONS (1)
  - CEREBROVASCULAR ACCIDENT [None]
